FAERS Safety Report 18568203 (Version 1)
Quarter: 2020Q4

REPORT INFORMATION
  Report Type: Spontaneous
  Country: GB (occurrence: GB)
  Receive Date: 20201202
  Receipt Date: 20201202
  Transmission Date: 20210114
  Serious: No
  Sender: FDA-Public Use
  Company Number: GB-ADVANZ PHARMA-202011010443

PATIENT

DRUGS (1)
  1. PREDNISOLONE 10MG/ML ORAL SOLUTION [Suspect]
     Active Substance: PREDNISOLONE
     Indication: ASTHMA

REACTIONS (3)
  - Pallor [Unknown]
  - Vomiting [Unknown]
  - Abdominal pain [Unknown]
